FAERS Safety Report 10015666 (Version 2)
Quarter: 2014Q4

REPORT INFORMATION
  Report Type: Spontaneous
  Country: US (occurrence: US)
  Receive Date: 20140317
  Receipt Date: 20141111
  Transmission Date: 20150528
  Serious: No
  Sender: FDA-Public Use
  Company Number: US-PFIZER INC-2014074499

PATIENT
  Age: 66 Year
  Sex: Female

DRUGS (2)
  1. ATORVASTATIN CALCIUM. [Suspect]
     Active Substance: ATORVASTATIN CALCIUM
     Dosage: 40 MG, 1X/DAY
  2. ATORVASTATIN CALCIUM. [Suspect]
     Active Substance: ATORVASTATIN CALCIUM
     Dosage: 50 MG, DAILY [TAKE ONE OF 40MG IN THE MORNING AND ONE OF 10MG IN THE EVENING]
     Dates: start: 20130601, end: 20130701

REACTIONS (3)
  - Malaise [Unknown]
  - Fatigue [Unknown]
  - Myalgia [Unknown]
